FAERS Safety Report 14168932 (Version 4)
Quarter: 2020Q4

REPORT INFORMATION
  Report Type: Spontaneous
  Country: US (occurrence: US)
  Receive Date: 20171108
  Receipt Date: 20201229
  Transmission Date: 20210113
  Serious: Yes (Other)
  Sender: FDA-Public Use
  Company Number: US-PFIZER INC-2017475847

PATIENT
  Age: 60 Year
  Sex: Female
  Weight: 70.3 kg

DRUGS (14)
  1. BENAZEPRIL [Concomitant]
     Active Substance: BENAZEPRIL HYDROCHLORIDE
     Dosage: UNK
  2. SUTENT [Suspect]
     Active Substance: SUNITINIB MALATE
     Indication: FIBROMA
     Dosage: 37.5 MG, DAILY
     Dates: start: 2017, end: 2017
  3. TUMS [Concomitant]
     Active Substance: CALCIUM CARBONATE
     Dosage: UNK, AS NEEDED
  4. DAILY VITE [ASCORBIC ACID;COLECALCIFEROL;CYANOCOBALAMIN;FOLIC ACID;NIC [Concomitant]
     Dosage: UNK
  5. LIDOCAINE. [Concomitant]
     Active Substance: LIDOCAINE
     Dosage: UNK
  6. PANTOPRAZOLE [Concomitant]
     Active Substance: PANTOPRAZOLE
     Dosage: UNK
  7. SYNTHROID [Concomitant]
     Active Substance: LEVOTHYROXINE SODIUM
     Dosage: UNK
  8. CARAFATE [Concomitant]
     Active Substance: SUCRALFATE
     Dosage: UNK
  9. SUTENT [Suspect]
     Active Substance: SUNITINIB MALATE
     Indication: GENITAL NEOPLASM MALIGNANT FEMALE
     Dosage: 25 MG, 1X/DAY
     Route: 048
     Dates: start: 20170926
  10. FLUCELVAX QUADRIVALENT [Concomitant]
     Dosage: UNK
  11. SHINGRIX [Concomitant]
     Active Substance: RECOMBINANT VARICELLA ZOSTER VIRUS (VZV) GLYCOPROTEIN E
     Dosage: UNK
  12. CLOBETASOL [Concomitant]
     Active Substance: CLOBETASOL
     Dosage: UNK
  13. ADVIL [IBUPROFEN] [Concomitant]
     Active Substance: IBUPROFEN
     Dosage: UNK
  14. DIPHENOXYLATE/ATROPINE [Concomitant]
     Active Substance: ATROPINE\DIPHENOXYLATE
     Dosage: UNK

REACTIONS (26)
  - Hypothyroidism [Unknown]
  - Skin haemorrhage [Unknown]
  - Palmar-plantar erythrodysaesthesia syndrome [Recovering/Resolving]
  - Tongue erythema [Recovering/Resolving]
  - Hypersensitivity [Recovering/Resolving]
  - Dysgeusia [Recovering/Resolving]
  - Anorectal discomfort [Unknown]
  - Gastrooesophageal reflux disease [Not Recovered/Not Resolved]
  - Condition aggravated [Recovering/Resolving]
  - Visual field defect [Recovered/Resolved]
  - Breast discolouration [Unknown]
  - Anal inflammation [Unknown]
  - Vulvovaginal inflammation [Unknown]
  - Hypertension [Recovered/Resolved]
  - Upper-airway cough syndrome [Recovered/Resolved]
  - Vulvovaginal discomfort [Unknown]
  - Liver function test abnormal [Unknown]
  - Pharyngeal disorder [Unknown]
  - Diarrhoea [Unknown]
  - Product use in unapproved indication [Unknown]
  - Skin discolouration [Unknown]
  - Oral pain [Unknown]
  - Dry skin [Unknown]
  - Vulvovaginal dryness [Unknown]
  - Migraine with aura [Unknown]
  - Cardiovascular disorder [Unknown]

NARRATIVE: CASE EVENT DATE: 2017
